FAERS Safety Report 7557683-7 (Version None)
Quarter: 2011Q2

REPORT INFORMATION
  Report Type: 
  Country: None (occurrence: None)
  Receive Date: 20110620
  Receipt Date: 20110613
  Transmission Date: 20111010
  Serious: Yes (Other)
  Sender: FDA-Public Use
  Company Number: CN-ASTRAZENECA-2011SE35970

PATIENT
  Sex: Male

DRUGS (2)
  1. PULMICORT [Suspect]
     Indication: CHRONIC OBSTRUCTIVE PULMONARY DISEASE
     Route: 055
  2. PULMICORT [Suspect]
     Indication: LUNG DISORDER
     Route: 055

REACTIONS (3)
  - WHEEZING [None]
  - RALES [None]
  - OFF LABEL USE [None]
